FAERS Safety Report 8808839 (Version 1)
Quarter: 2012Q4

REPORT INFORMATION
  Report Type: 
  Country: US (occurrence: None)
  Receive Date: 20120921
  Receipt Date: 20120921
  Transmission Date: 20130627
  Serious: Yes (Hospitalization)
  Sender: FDA-Public Use
  Company Number: None

PATIENT
  Sex: Female
  Weight: 108.18 kg

DRUGS (3)
  1. IFOSFAMIDE [Suspect]
     Dosage: ifosfamide 2gm/m2day, 1, 2, 3
  2. TAXOL [Suspect]
  3. NEULASTA [Suspect]

REACTIONS (5)
  - Mental status changes [None]
  - Encephalopathy [None]
  - Thrombocytopenia [None]
  - Anaemia [None]
  - Acute prerenal failure [None]
